FAERS Safety Report 8166871-0 (Version None)
Quarter: 2012Q1

REPORT INFORMATION
  Report Type: 
  Country: None (occurrence: None)
  Receive Date: 20120227
  Receipt Date: 20120220
  Transmission Date: 20120608
  Serious: Yes (Hospitalization)
  Sender: FDA-Public Use
  Company Number: US-ROCHE-1041823

PATIENT
  Sex: Female

DRUGS (1)
  1. TAMIFLU [Suspect]
     Indication: INFLUENZA
     Route: 048
     Dates: start: 20120215, end: 20120219

REACTIONS (3)
  - CHOLECYSTITIS [None]
  - WHITE BLOOD CELL COUNT INCREASED [None]
  - BLOOD ALBUMIN DECREASED [None]
